FAERS Safety Report 25159827 (Version 2)
Quarter: 2025Q2

REPORT INFORMATION
  Report Type: Spontaneous
  Country: US (occurrence: US)
  Receive Date: 20250404
  Receipt Date: 20250416
  Transmission Date: 20250717
  Serious: Yes (Death)
  Sender: ROCHE
  Company Number: US-ROCHE-10000247916

PATIENT
  Age: 71 Year
  Sex: Male

DRUGS (1)
  1. ESBRIET [Suspect]
     Active Substance: PIRFENIDONE
     Indication: Idiopathic pulmonary fibrosis
     Route: 048
     Dates: start: 202310

REACTIONS (1)
  - Death [Fatal]

NARRATIVE: CASE EVENT DATE: 20250304
